FAERS Safety Report 18297223 (Version 2)
Quarter: 2020Q4

REPORT INFORMATION
  Report Type: Spontaneous
  Country: US (occurrence: US)
  Receive Date: 20200923
  Receipt Date: 20201006
  Transmission Date: 20210113
  Serious: Yes (Hospitalization, Other)
  Sender: FDA-Public Use
  Company Number: US-AUROBINDO-AUR-APL-2020-048471

PATIENT
  Age: 27 Year
  Sex: Female
  Weight: 83.9 kg

DRUGS (10)
  1. OLANZAPINE. [Suspect]
     Active Substance: OLANZAPINE
     Dosage: UNK (STARTED ON HD DAY 1 (TOTAL DAILY DOSE { 40MG))
     Route: 048
  2. OLANZAPINE. [Suspect]
     Active Substance: OLANZAPINE
     Dosage: 40 MILLIGRAM, ONCE A DAY
     Route: 048
  3. OLANZAPINE. [Suspect]
     Active Substance: OLANZAPINE
     Indication: BIPOLAR I DISORDER
     Dosage: UNK, TWO TIMES A DAY (BY HD 9 TITRATED TO 10 MG IN THE MORNING 20 MG IN THE EVENING)
     Route: 065
  4. OLANZAPINE. [Suspect]
     Active Substance: OLANZAPINE
     Dosage: UNK (STARTED ON HD DAY 1 (TOTAL DAILY DOSE { 40MG)STARTED ON HD DAY 1 (TOTAL DAILY DOSE { 40MG))
     Route: 065
  5. LITHIUM. [Concomitant]
     Active Substance: LITHIUM
     Indication: BIPOLAR I DISORDER
     Dosage: 300 MILLIGRAM, TWO TIMES A DAY (ON HD DAY 1)
     Route: 048
  6. OLANZAPINE. [Suspect]
     Active Substance: OLANZAPINE
     Dosage: 10 MILLIGRAM, ONCE A DAY (BY HD 9 TITRATED TO 10 MG IN THE MORNING)
     Route: 048
  7. OLANZAPINE. [Suspect]
     Active Substance: OLANZAPINE
     Dosage: 25 MILLIGRAM, ONCE A DAY (9 DAYS)
     Route: 048
  8. OLANZAPINE. [Suspect]
     Active Substance: OLANZAPINE
     Dosage: 25 MILLIGRAM (ON DAY 16)
  9. OLANZAPINE. [Suspect]
     Active Substance: OLANZAPINE
     Dosage: 20 MILLIGRAM, ONCE A DAY (BY HD 9 TITRATED TO 20 MG IN THE EVENING)
     Route: 048
  10. LITHIUM. [Concomitant]
     Active Substance: LITHIUM
     Indication: MANIA
     Dosage: 1500 MILLIGRAM, ONCE A DAY
     Route: 048

REACTIONS (6)
  - Weight increased [Recovering/Resolving]
  - Pruritus [Recovering/Resolving]
  - Drug interaction [Unknown]
  - Drug level decreased [Recovering/Resolving]
  - Oedema peripheral [Recovered/Resolved]
  - Erythema [Recovering/Resolving]
